FAERS Safety Report 11216544 (Version 1)
Quarter: 2015Q2

REPORT INFORMATION
  Report Type: Spontaneous
  Country: US (occurrence: US)
  Receive Date: 20150624
  Receipt Date: 20150624
  Transmission Date: 20150821
  Serious: No
  Sender: FDA-Public Use
  Company Number: US-BAYER-2015-363408

PATIENT
  Age: 46 Year
  Sex: Male
  Weight: 88.44 kg

DRUGS (1)
  1. ZEGERID OTC CAPSULES [Suspect]
     Active Substance: OMEPRAZOLE\SODIUM BICARBONATE
     Dosage: UNK
     Route: 048
     Dates: start: 20150620

REACTIONS (2)
  - Stomatitis [Recovered/Resolved]
  - Intentional product use issue [None]

NARRATIVE: CASE EVENT DATE: 20150620
